FAERS Safety Report 4631897-8 (Version None)
Quarter: 2005Q2

REPORT INFORMATION
  Report Type: 
  Country: None (occurrence: None)
  Receive Date: 20050411
  Receipt Date: 20050404
  Transmission Date: 20051028
  Serious: Yes (Death)
  Sender: FDA-Public Use
  Company Number: US-BRISTOL-MYERS SQUIBB COMPANY-12922738

PATIENT
  Age: 71 Year
  Sex: Male

DRUGS (1)
  1. SERZONE [Suspect]
     Route: 048
     Dates: start: 19990101, end: 20010924

REACTIONS (1)
  - CARDIOMYOPATHY [None]
